FAERS Safety Report 8975594 (Version 2)
Quarter: 2013Q1

REPORT INFORMATION
  Report Type: Report from Study
  Country: JP (occurrence: JP)
  Receive Date: 20121219
  Receipt Date: 20130124
  Transmission Date: 20140127
  Serious: Yes (Hospitalization, Other)
  Sender: FDA-Public Use
  Company Number: JP-ROCHE-634838

PATIENT
  Age: 62 Year
  Sex: Female
  Weight: 54.1 kg

DRUGS (38)
  1. TOCILIZUMAB [Suspect]
     Indication: RHEUMATOID ARTHRITIS
     Route: 041
     Dates: start: 20090226, end: 20090226
  2. TOCILIZUMAB [Suspect]
     Route: 041
     Dates: start: 20090326, end: 20090326
  3. TOCILIZUMAB [Suspect]
     Route: 041
     Dates: start: 20090528, end: 20090528
  4. METHOTREXATE [Suspect]
     Indication: RHEUMATOID ARTHRITIS
     Route: 048
     Dates: start: 200107
  5. METHOTREXATE [Suspect]
     Route: 048
     Dates: start: 200812
  6. METHOTREXATE [Suspect]
     Route: 048
     Dates: start: 20081223
  7. METHOTREXATE [Suspect]
     Route: 048
     Dates: start: 20081224, end: 20090325
  8. METHOTREXATE [Suspect]
     Route: 048
     Dates: start: 200905, end: 20090624
  9. METHOTREXATE [Suspect]
     Route: 048
     Dates: start: 201006
  10. METHOTREXATE [Suspect]
     Route: 048
     Dates: start: 20101221
  11. METHOTREXATE [Suspect]
     Route: 048
     Dates: start: 20101124
  12. METHOTREXATE [Suspect]
     Route: 048
     Dates: start: 201009, end: 20101125
  13. PREDNISOLONE [Suspect]
     Indication: RHEUMATOID ARTHRITIS
     Route: 048
     Dates: start: 200104, end: 20080123
  14. PREDNISOLONE [Suspect]
     Route: 048
     Dates: start: 20080124, end: 20080730
  15. PREDNISOLONE [Suspect]
     Route: 048
     Dates: start: 20080731, end: 200812
  16. PREDNISOLONE [Suspect]
     Route: 048
     Dates: start: 200812, end: 20101220
  17. PREDNISOLONE [Suspect]
     Route: 048
     Dates: start: 20101221
  18. ETANERCEPT [Suspect]
     Indication: RHEUMATOID ARTHRITIS
     Route: 058
     Dates: start: 20100113, end: 20100127
  19. ETANERCEPT [Suspect]
     Route: 058
     Dates: start: 20100226, end: 20111124
  20. MELOXICAM [Suspect]
     Indication: PRODUCT USED FOR UNKNOWN INDICATION
     Route: 048
     Dates: start: 201012, end: 201012
  21. AMLODIN [Concomitant]
     Indication: HYPERTENSION
     Route: 048
  22. FLUITRAN [Concomitant]
     Indication: HYPERTENSION
     Route: 048
  23. ALFAROL [Concomitant]
     Indication: PROPHYLAXIS
     Route: 048
  24. MUCOSTA [Concomitant]
     Indication: PROPHYLAXIS
     Route: 048
  25. LOWGAN [Concomitant]
     Indication: HYPERTENSION
     Route: 048
  26. BLOPRESS [Concomitant]
     Indication: HYPERTENSION
     Route: 048
  27. MEVALOTIN [Concomitant]
     Indication: PROPHYLAXIS
     Route: 048
  28. EURODIN [Concomitant]
     Route: 048
  29. EURODIN [Concomitant]
     Route: 048
  30. EURODIN [Concomitant]
     Route: 048
  31. CATLEP [Concomitant]
     Indication: RHEUMATOID ARTHRITIS
     Dosage: TAKEN AS NEEDED
     Route: 061
  32. LOXONIN [Concomitant]
     Indication: RHEUMATOID ARTHRITIS
     Route: 048
  33. LOXONIN [Concomitant]
     Route: 048
  34. LOXONIN [Concomitant]
     Route: 048
  35. ISCOTIN [Concomitant]
     Indication: TUBERCULOSIS
     Route: 048
  36. ARTIST [Concomitant]
     Route: 048
  37. TERNELIN [Concomitant]
     Route: 048
  38. HUMIRA [Concomitant]
     Indication: RHEUMATOID ARTHRITIS
     Route: 058
     Dates: start: 20090528, end: 20090624

REACTIONS (14)
  - Pneumonia [Recovered/Resolved]
  - Acute sinusitis [Recovered/Resolved]
  - Pneumonia bacterial [Recovered/Resolved]
  - Atypical pneumonia [Unknown]
  - Pancytopenia [Recovered/Resolved]
  - Bronchitis [Unknown]
  - White blood cell count decreased [Unknown]
  - Platelet count decreased [Unknown]
  - Arthritis [Unknown]
  - Rash [Unknown]
  - Dyslipidaemia [Unknown]
  - Temporomandibular joint syndrome [Unknown]
  - Hepatic steatosis [Unknown]
  - Seasonal allergy [Not Recovered/Not Resolved]
